FAERS Safety Report 23780051 (Version 2)
Quarter: 2024Q2

REPORT INFORMATION
  Report Type: Spontaneous
  Country: AU (occurrence: AU)
  Receive Date: 20240424
  Receipt Date: 20240507
  Transmission Date: 20240716
  Serious: Yes (Hospitalization, Other)
  Sender: FDA-Public Use
  Company Number: AU-Nova Laboratories Limited-2155976

PATIENT
  Age: 24 Year

DRUGS (3)
  1. PURIXAN [Suspect]
     Active Substance: MERCAPTOPURINE
     Indication: Product used for unknown indication
  2. ENTYVIO [Suspect]
     Active Substance: VEDOLIZUMAB
     Route: 058
     Dates: start: 202303
  3. MESALAMINE [Suspect]
     Active Substance: MESALAMINE

REACTIONS (2)
  - Anal abscess [Not Recovered/Not Resolved]
  - Drug effect less than expected [Not Recovered/Not Resolved]
